FAERS Safety Report 18318451 (Version 2)
Quarter: 2020Q4

REPORT INFORMATION
  Report Type: Report from Study
  Country: IT (occurrence: IT)
  Receive Date: 20200928
  Receipt Date: 20201204
  Transmission Date: 20210113
  Serious: Yes (Other)
  Sender: FDA-Public Use
  Company Number: IT-ACCORD-202931

PATIENT
  Age: 79 Year
  Sex: Female

DRUGS (2)
  1. GLIMEPIRIDE. [Suspect]
     Active Substance: GLIMEPIRIDE
     Indication: TYPE 2 DIABETES MELLITUS
     Route: 048
     Dates: start: 20190827, end: 20200827
  2. CILAZAPRIL [Concomitant]
     Active Substance: CILAZAPRIL ANHYDROUS

REACTIONS (1)
  - Neuroglycopenia [Recovered/Resolved]

NARRATIVE: CASE EVENT DATE: 20200827
